FAERS Safety Report 16421822 (Version 1)
Quarter: 2019Q2

REPORT INFORMATION
  Report Type: Spontaneous
  Country: US (occurrence: US)
  Receive Date: 20190612
  Receipt Date: 20190612
  Transmission Date: 20190711
  Serious: No
  Sender: FDA-Public Use
  Company Number: US-SUNOVION-2019SUN002367

PATIENT

DRUGS (1)
  1. LUNESTA [Suspect]
     Active Substance: ESZOPICLONE
     Route: 048

REACTIONS (1)
  - Hypersensitivity [Unknown]
